FAERS Safety Report 8294262-0 (Version None)
Quarter: 2012Q2

REPORT INFORMATION
  Report Type: 
  Country: None (occurrence: None)
  Receive Date: 20120418
  Receipt Date: 20120412
  Transmission Date: 20120825
  Serious: Yes (Death)
  Sender: FDA-Public Use
  Company Number: US-PFIZER INC-2012091291

PATIENT
  Sex: Male

DRUGS (2)
  1. XALKORI [Suspect]
     Indication: BRONCHIAL NEOPLASM
     Dosage: 250 MG, 2X/DAY
     Dates: start: 20111109, end: 20120106
  2. XALKORI [Suspect]
     Indication: LUNG NEOPLASM MALIGNANT

REACTIONS (1)
  - DEATH [None]
